FAERS Safety Report 14935487 (Version 1)
Quarter: 2018Q2

REPORT INFORMATION
  Report Type: Spontaneous
  Country: US (occurrence: US)
  Receive Date: 20180524
  Receipt Date: 20180524
  Transmission Date: 20180711
  Serious: No
  Sender: FDA-Public Use
  Company Number: US-PERRIGO-17US024423

PATIENT
  Age: 39 Year
  Sex: Male
  Weight: 109.75 kg

DRUGS (4)
  1. DIHYDROERGOTAMINE MESYLATE. [Suspect]
     Active Substance: DIHYDROERGOTAMINE MESYLATE
     Dosage: 1 MG, QD, PRN
     Route: 030
     Dates: start: 20170610, end: 20170613
  2. VERAPAMIL [Concomitant]
     Active Substance: VERAPAMIL HYDROCHLORIDE
     Indication: CLUSTER HEADACHE
     Dosage: UNK
     Route: 048
     Dates: start: 201702
  3. DIHYDROERGOTAMINE MESYLATE. [Suspect]
     Active Substance: DIHYDROERGOTAMINE MESYLATE
     Indication: CLUSTER HEADACHE
     Dosage: 1 MG, QD, PRN
     Route: 030
     Dates: start: 2013, end: 20170609
  4. TOPAMAX [Concomitant]
     Active Substance: TOPIRAMATE
     Indication: CLUSTER HEADACHE
     Dosage: UNK
     Route: 048
     Dates: start: 20170610

REACTIONS (1)
  - Drug effect decreased [Unknown]

NARRATIVE: CASE EVENT DATE: 20170610
